FAERS Safety Report 16566950 (Version 1)
Quarter: 2019Q3

REPORT INFORMATION
  Report Type: Report from Study
  Country: US (occurrence: US)
  Receive Date: 20190712
  Receipt Date: 20190712
  Transmission Date: 20191004
  Serious: Yes (Other)
  Sender: FDA-Public Use
  Company Number: US-PFIZER INC-2019297382

PATIENT

DRUGS (1)
  1. DOXORUBICIN HCL [Suspect]
     Active Substance: DOXORUBICIN HYDROCHLORIDE
     Indication: SARCOMA
     Dosage: UNK UNK, CYCLIC (375-450 MG/M2) (OVER A PERIOD OF APPROXIMATELY 6 MONTHS)
     Route: 042

REACTIONS (1)
  - Cardiac failure [Unknown]
